FAERS Safety Report 5393479-2 (Version None)
Quarter: 2007Q3

REPORT INFORMATION
  Report Type: 
  Country: None (occurrence: None)
  Receive Date: 20070723
  Receipt Date: 20060615
  Transmission Date: 20080115
  Serious: No
  Sender: FDA-Public Use
  Company Number: A0609151A

PATIENT
  Age: 50 Year
  Sex: Female

DRUGS (10)
  1. AVANDIA [Suspect]
     Dosage: 4MG PER DAY
     Route: 048
     Dates: start: 20040101
  2. CYMBALTA [Concomitant]
  3. FLEXERIL [Concomitant]
  4. AMBRIL [Concomitant]
  5. ULTRAM [Concomitant]
  6. ALTACE [Concomitant]
  7. NEXIUM [Concomitant]
  8. UNKNOWN MEDICATION [Concomitant]
  9. METFORMIN HCL [Concomitant]
  10. COZAAR [Concomitant]

REACTIONS (1)
  - OEDEMA [None]
